FAERS Safety Report 6384707-5 (Version None)
Quarter: 2009Q4

REPORT INFORMATION
  Report Type: 
  Country: None (occurrence: None)
  Receive Date: 20091001
  Receipt Date: 20090918
  Transmission Date: 20100525
  Serious: Yes (Other)
  Sender: FDA-Public Use
  Company Number: US-WATSON-2009-07757

PATIENT
  Sex: Male
  Weight: 134.24 kg

DRUGS (2)
  1. ANDRODERM [Suspect]
     Indication: BLOOD TESTOSTERONE DECREASED
     Dosage: APPLY 1 PATCH, DAILY
     Route: 062
     Dates: start: 20090601, end: 20090901
  2. ANDRODERM [Suspect]
     Dosage: APPLY 1 PATCH, DAILY
     Route: 062
     Dates: start: 20080901, end: 20090601

REACTIONS (5)
  - BLOOD TESTOSTERONE DECREASED [None]
  - BLOOD TESTOSTERONE FREE DECREASED [None]
  - DRUG INEFFECTIVE [None]
  - THYROID CANCER [None]
  - THYROID DISORDER [None]
